FAERS Safety Report 9761576 (Version 1)
Quarter: 2013Q3

REPORT INFORMATION
  Report Type: Spontaneous
  Country: JP (occurrence: None)
  Receive Date: 20130820
  Receipt Date: 20130820
  Transmission Date: 20140515
  Serious: Yes (Death)
  Sender: FDA-Public Use
  Company Number: 2013037241

PATIENT
  Age: 45 Year
  Sex: Male

DRUGS (2)
  1. IVIG (IMMUNE GLOBULIN INTRAVENOUS (HUMAN)) [Suspect]
     Indication: NEUROPATHY PERIPHERAL
  2. IVIG (IMMUNE GLOBULIN INTRAVENOUS (HUMAN)) [Suspect]
     Indication: IMMUNE THROMBOCYTOPENIC PURPURA

REACTIONS (2)
  - Drug ineffective for unapproved indication [None]
  - Gastrointestinal haemorrhage [None]
